FAERS Safety Report 6420953-X (Version None)
Quarter: 2009Q4

REPORT INFORMATION
  Report Type: 
  Country: None (occurrence: None)
  Receive Date: 20091030
  Receipt Date: 20091019
  Transmission Date: 20100525
  Serious: Yes (Other)
  Sender: FDA-Public Use
  Company Number: US-JNJFOC-20091005963

PATIENT
  Sex: Male
  Weight: 79.83 kg

DRUGS (4)
  1. REMICADE [Suspect]
     Indication: COLITIS ULCERATIVE
     Route: 042
     Dates: start: 20050204
  2. IMURAN [Concomitant]
     Indication: COLITIS ULCERATIVE
  3. ACTOS [Concomitant]
     Indication: DIABETES MELLITUS
  4. ^MILKTHISTLE^ [Concomitant]

REACTIONS (2)
  - BLOOD POTASSIUM INCREASED [None]
  - RHEUMATOID ARTHRITIS [None]
